FAERS Safety Report 8835027 (Version 3)
Quarter: 2013Q1

REPORT INFORMATION
  Report Type: Spontaneous
  Country: US (occurrence: None)
  Receive Date: 20121009
  Receipt Date: 20121204
  Transmission Date: 20140127
  Serious: Yes (Life-Threatening, Hospitalization, Other)
  Sender: FDA-Public Use
  Company Number: DSA_59959_2012

PATIENT
  Sex: Female

DRUGS (10)
  1. XENAZINE [Suspect]
     Indication: HUNTINGTON^S DISEASE
     Route: 048
     Dates: start: 20120914, end: 201209
  2. MILK OF MAGNESIA [Concomitant]
  3. DOCUSATE [Concomitant]
  4. LISINOPRIL [Concomitant]
  5. TYLENOL /00020001/ [Concomitant]
  6. JEVITY [Concomitant]
  7. BISACODYL [Concomitant]
  8. BENZTROPINE [Concomitant]
  9. MULTIVITAMINS [Concomitant]
  10. ROBITUSSIN /00048001/ [Concomitant]

REACTIONS (3)
  - Pyrexia [None]
  - Huntington^s disease [None]
  - Disease progression [None]
